FAERS Safety Report 4340471-2 (Version None)
Quarter: 2004Q2

REPORT INFORMATION
  Report Type: 
  Country: None (occurrence: None)
  Receive Date: 20040414
  Receipt Date: 20040405
  Transmission Date: 20050107
  Serious: Yes (Hospitalization, Other)
  Sender: FDA-Public Use
  Company Number: US-JNJFOC-20040204790

PATIENT
  Age: 41 Year
  Sex: Male
  Weight: 83.4619 kg

DRUGS (1)
  1. ULTRAM [Suspect]
     Indication: EPICONDYLITIS
     Dosage: ORAL
     Route: 048

REACTIONS (1)
  - PANCREATITIS [None]
